FAERS Safety Report 6673287-2 (Version None)
Quarter: 2010Q2

REPORT INFORMATION
  Report Type: 
  Country: None (occurrence: None)
  Receive Date: 20100408
  Receipt Date: 20100329
  Transmission Date: 20101027
  Serious: Yes (Hospitalization)
  Sender: FDA-Public Use
  Company Number: FR-PFIZER INC-2010040159

PATIENT
  Age: 41 Year
  Sex: Male

DRUGS (5)
  1. TRIFLUCAN [Suspect]
     Indication: CANDIDIASIS
     Dosage: 400 MG, 2X/DAY
     Route: 048
     Dates: start: 20090824, end: 20090929
  2. NEURONTIN [Suspect]
     Indication: SCIATICA
     Dosage: 200 MG, 3X/DAY
     Route: 048
     Dates: start: 20090801, end: 20090929
  3. TAVANIC [Suspect]
     Indication: SEPSIS
     Dosage: 750 MG, 1X/DAY
     Route: 048
     Dates: start: 20090824, end: 20090929
  4. DALACIN [Concomitant]
     Indication: SEPSIS
     Dosage: 600 MG, 2X/DAY
     Route: 048
     Dates: start: 20090824, end: 20090929
  5. METHADONE [Concomitant]
     Indication: DRUG DEPENDENCE
     Dosage: UNK
     Route: 048
     Dates: start: 20090801

REACTIONS (1)
  - HEPATIC ENCEPHALOPATHY [None]
